FAERS Safety Report 13742431 (Version 3)
Quarter: 2017Q3

REPORT INFORMATION
  Report Type: Spontaneous
  Country: IT (occurrence: IT)
  Receive Date: 20170711
  Receipt Date: 20170807
  Transmission Date: 20171127
  Serious: Yes (Other)
  Sender: FDA-Public Use
  Company Number: IT-ROCHE-1866824

PATIENT
  Age: 57 Year
  Sex: Female
  Weight: 96 kg

DRUGS (17)
  1. AVASTIN [Suspect]
     Active Substance: BEVACIZUMAB
     Route: 042
     Dates: start: 20170302
  2. OXALIPLATIN. [Suspect]
     Active Substance: OXALIPLATIN
     Indication: ADENOCARCINOMA OF COLON
     Route: 042
     Dates: start: 20160408, end: 20160728
  3. AVASTIN [Suspect]
     Active Substance: BEVACIZUMAB
     Indication: ADENOCARCINOMA OF COLON
     Route: 042
     Dates: start: 20160408, end: 20160728
  4. IRINOTECAN HYDROCHLORIDE TRIHYDRATE [Suspect]
     Active Substance: IRINOTECAN HYDROCHLORIDE
     Indication: ADENOCARCINOMA OF COLON
     Route: 042
     Dates: start: 20160408, end: 20160728
  5. AVASTIN [Suspect]
     Active Substance: BEVACIZUMAB
     Route: 042
     Dates: start: 20170302, end: 20170504
  6. XELODA [Suspect]
     Active Substance: CAPECITABINE
     Route: 048
  7. FLUOROURACILE [Suspect]
     Active Substance: FLUOROURACIL
     Indication: ADENOCARCINOMA OF COLON
     Route: 040
     Dates: start: 20160812
  8. LEDERFOLIN [Concomitant]
     Active Substance: LEUCOVORIN CALCIUM
     Indication: ADENOCARCINOMA OF COLON
     Route: 042
     Dates: start: 20160408, end: 20160728
  9. LEDERFOLIN [Concomitant]
     Active Substance: LEUCOVORIN CALCIUM
     Route: 042
     Dates: start: 20160812, end: 20161124
  10. AVASTIN [Suspect]
     Active Substance: BEVACIZUMAB
     Route: 042
     Dates: start: 20160812
  11. FLUOROURACILE [Suspect]
     Active Substance: FLUOROURACIL
     Route: 042
     Dates: start: 20160812
  12. XELODA [Suspect]
     Active Substance: CAPECITABINE
     Indication: ADENOCARCINOMA OF COLON
     Dosage: 4 DOSAGE UNIT
     Route: 048
     Dates: start: 20170112, end: 20170504
  13. OXALIPLATIN. [Suspect]
     Active Substance: OXALIPLATIN
     Route: 042
     Dates: start: 20170112, end: 20170504
  14. OXALIPLATIN. [Suspect]
     Active Substance: OXALIPLATIN
     Route: 042
  15. FLUOROURACILE [Suspect]
     Active Substance: FLUOROURACIL
     Route: 042
     Dates: start: 20160408, end: 20160728
  16. LEVOFOLINIC ACID [Concomitant]
     Active Substance: LEVOLEUCOVORIN
     Indication: ADENOCARCINOMA OF COLON
     Route: 042
     Dates: start: 20160812, end: 20161124
  17. LEVOFOLINIC ACID [Concomitant]
     Active Substance: LEVOLEUCOVORIN
     Route: 042
     Dates: start: 20160408, end: 20160728

REACTIONS (9)
  - Thrombocytopenia [Recovering/Resolving]
  - Neutropenia [Not Recovered/Not Resolved]
  - Pyrexia [Recovering/Resolving]
  - Infusion related reaction [Recovering/Resolving]
  - Cystitis [Recovering/Resolving]
  - Neutropenia [Recovering/Resolving]
  - Sciatica [Recovering/Resolving]
  - Constipation [Recovering/Resolving]
  - Diarrhoea [Recovering/Resolving]

NARRATIVE: CASE EVENT DATE: 20160412
